APPROVED DRUG PRODUCT: CHENIX
Active Ingredient: CHENODIOL
Strength: 250MG **Federal Register determination that product was not discontinued or withdrawn for safety or effectiveness reasons**
Dosage Form/Route: TABLET;ORAL
Application: N018513 | Product #002
Applicant: LEADIANT BIOSCIENCES INC
Approved: Jul 28, 1983 | RLD: Yes | RS: No | Type: DISCN